FAERS Safety Report 20562289 (Version 2)
Quarter: 2022Q2

REPORT INFORMATION
  Report Type: Spontaneous
  Country: RU (occurrence: RU)
  Receive Date: 20220307
  Receipt Date: 20220406
  Transmission Date: 20220721
  Serious: Yes (Life-Threatening)
  Sender: FDA-Public Use
  Company Number: RU-ABBOTT-2022A-1346252

PATIENT
  Age: 3 Year
  Sex: Female
  Weight: 16 kg

DRUGS (5)
  1. CREON [Suspect]
     Active Substance: PANCRELIPASE AMYLASE\PANCRELIPASE LIPASE\PANCRELIPASE PROTEASE
     Indication: Cystic fibrosis
     Dosage: DAILY DOSE: 10000?36 CAPSULES
     Route: 048
     Dates: start: 20211210, end: 20211225
  2. NEXIUM [Concomitant]
     Active Substance: ESOMEPRAZOLE MAGNESIUM
     Indication: Cystic fibrosis
     Dosage: DAILY DOSE: 10 MG
     Route: 048
  3. URSODIOL [Concomitant]
     Active Substance: URSODIOL
     Indication: Cystic fibrosis
     Dosage: DAILY DOSE: 8 ML
     Route: 048
  4. ACIPOL [Concomitant]
     Indication: Product used for unknown indication
     Dosage: DAILY DOSE: 2 DROP
     Route: 048
  5. ENTEROL [Concomitant]
     Indication: Product used for unknown indication
     Dosage: DAILY DOSE: 500 MG
     Route: 048

REACTIONS (20)
  - Listless [Recovered/Resolved]
  - Mucous stools [Recovered/Resolved]
  - Oral mucosal erythema [Unknown]
  - Oral discomfort [Unknown]
  - Regurgitation [Unknown]
  - Steatorrhoea [Unknown]
  - Proctitis [Unknown]
  - Stool analysis abnormal [Unknown]
  - Metabolic disorder [Unknown]
  - Blood pH decreased [Unknown]
  - Stool analysis abnormal [Unknown]
  - Dysbiosis [Unknown]
  - Vulvovaginal discomfort [Unknown]
  - Anorectal discomfort [Unknown]
  - Product quality issue [Unknown]
  - Abdominal pain [Recovered/Resolved]
  - Vomiting [Recovered/Resolved]
  - Diarrhoea [Recovered/Resolved]
  - Flatulence [Unknown]
  - Nausea [Unknown]

NARRATIVE: CASE EVENT DATE: 20211210
